FAERS Safety Report 7121079-2 (Version None)
Quarter: 2010Q4

REPORT INFORMATION
  Report Type: 
  Country: None (occurrence: None)
  Receive Date: 20101124
  Receipt Date: 20101116
  Transmission Date: 20110411
  Serious: Yes (Other)
  Sender: FDA-Public Use
  Company Number: JP-BRISTOL-MYERS SQUIBB COMPANY-15358955

PATIENT
  Age: 76 Year
  Sex: Male
  Weight: 57 kg

DRUGS (2)
  1. HYDREA [Suspect]
     Indication: ESSENTIAL THROMBOCYTHAEMIA
     Dosage: INTERRUPTED ON:MAR 2006.
     Route: 048
     Dates: start: 20030101
  2. ASPIRIN [Suspect]
     Indication: ESSENTIAL THROMBOCYTHAEMIA
     Dosage: TAB
     Route: 048
     Dates: start: 20030101

REACTIONS (2)
  - CYSTITIS HAEMORRHAGIC [None]
  - ERYTHROMELALGIA [None]
